FAERS Safety Report 6022377-6 (Version None)
Quarter: 2008Q4

REPORT INFORMATION
  Report Type: 
  Country: None (occurrence: None)
  Receive Date: 20081230
  Receipt Date: 20081219
  Transmission Date: 20090506
  Serious: Yes (Life-Threatening)
  Sender: FDA-Public Use
  Company Number: JP-ABBOTT-08P-087-0487023-00

PATIENT
  Age: 78 Year
  Sex: Male

DRUGS (3)
  1. LEUPROLIDE ACETATE [Suspect]
     Indication: PROSTATE CANCER STAGE II
     Route: 058
     Dates: start: 20060706
  2. LEUPROLIDE ACETATE [Suspect]
     Route: 058
     Dates: start: 20060105, end: 20060608
  3. CASODEX [Concomitant]
     Indication: PROSTATE CANCER STAGE II
     Route: 048
     Dates: start: 20051227

REACTIONS (1)
  - BLADDER CANCER [None]
